FAERS Safety Report 6160883-4 (Version None)
Quarter: 2009Q2

REPORT INFORMATION
  Report Type: 
  Country: None (occurrence: None)
  Receive Date: 20090420
  Receipt Date: 20090406
  Transmission Date: 20091009
  Serious: Yes (Death, Life-Threatening, Other)
  Sender: FDA-Public Use
  Company Number: JP-PFIZER INC-2009180254

PATIENT

DRUGS (4)
  1. ZYVOX [Suspect]
     Indication: STAPHYLOCOCCAL SEPSIS
     Dosage: 600 MG, 2X/DAY
     Route: 042
     Dates: start: 20090228, end: 20090302
  2. CELECOXIB [Concomitant]
     Route: 048
  3. GASTER [Concomitant]
     Route: 048
  4. METFORMIN HCL [Concomitant]
     Dosage: UNK
     Route: 048
     Dates: end: 20090226

REACTIONS (4)
  - ACUTE RESPIRATORY DISTRESS SYNDROME [None]
  - PLATELET COUNT DECREASED [None]
  - PSOAS ABSCESS [None]
  - STAPHYLOCOCCAL SEPSIS [None]
